FAERS Safety Report 15077171 (Version 1)
Quarter: 2018Q2

REPORT INFORMATION
  Report Type: Spontaneous
  Country: JP (occurrence: JP)
  Receive Date: 20180627
  Receipt Date: 20180627
  Transmission Date: 20180711
  Serious: Yes (Other)
  Sender: FDA-Public Use
  Company Number: JP-MYLANLABS-2018M1045858

PATIENT
  Age: 21 Year
  Sex: Female

DRUGS (3)
  1. CASPOFUNGIN [Concomitant]
     Active Substance: CASPOFUNGIN
     Indication: CANDIDA INFECTION
     Route: 065
  2. CYCLOSPORINE. [Concomitant]
     Active Substance: CYCLOSPORINE
     Indication: INFLAMMATION
     Route: 065
  3. HEPARIN [Suspect]
     Active Substance: HEPARIN SODIUM
     Indication: COAGULATION TEST ABNORMAL
     Dosage: INITIAL DOSE NOT STATED; LATER, THE DOSE WAS INCREASED
     Route: 065

REACTIONS (3)
  - Mouth haemorrhage [Recovering/Resolving]
  - Rectal haemorrhage [Recovering/Resolving]
  - Vascular pseudoaneurysm [Recovering/Resolving]
